FAERS Safety Report 5754002-3 (Version None)
Quarter: 2008Q2

REPORT INFORMATION
  Report Type: 
  Country: None (occurrence: None)
  Receive Date: 20080527
  Receipt Date: 20080527
  Transmission Date: 20081010
  Serious: Yes (Life-Threatening)
  Sender: FDA-Public Use
  Company Number: None

PATIENT
  Age: 61 Year
  Sex: Female
  Weight: 108.8633 kg

DRUGS (1)
  1. CHANTIX [Suspect]
     Indication: SMOKING CESSATION THERAPY
     Dosage: 2 TABLETS DAILY PO
     Route: 048
     Dates: start: 20071003, end: 20071225

REACTIONS (11)
  - BRADYPHRENIA [None]
  - CONFUSIONAL STATE [None]
  - DEPRESSION [None]
  - DYSPHAGIA [None]
  - HYPOSMIA [None]
  - INCREASED APPETITE [None]
  - IRRITABILITY [None]
  - MEMORY IMPAIRMENT [None]
  - MYALGIA [None]
  - SUICIDAL IDEATION [None]
  - TINNITUS [None]
